FAERS Safety Report 7073499-2 (Version None)
Quarter: 2010Q4

REPORT INFORMATION
  Report Type: 
  Country: None (occurrence: None)
  Receive Date: 20101029
  Receipt Date: 20100816
  Transmission Date: 20110411
  Serious: No
  Sender: FDA-Public Use
  Company Number: A0867649A

PATIENT
  Age: 75 Year
  Sex: Male
  Weight: 165.5 kg

DRUGS (6)
  1. ADVAIR DISKUS 100/50 [Suspect]
     Indication: CHRONIC OBSTRUCTIVE PULMONARY DISEASE
     Dosage: 1PUFF TWICE PER DAY
     Route: 055
     Dates: start: 20081201
  2. METOPROLOL [Concomitant]
  3. OXYGEN [Concomitant]
  4. SIMVASTATIN [Concomitant]
  5. KLOR-CON [Concomitant]
  6. LASIX [Concomitant]

REACTIONS (2)
  - PRODUCT QUALITY ISSUE [None]
  - TOTAL LUNG CAPACITY DECREASED [None]
